FAERS Safety Report 4649379-6 (Version None)
Quarter: 2005Q2

REPORT INFORMATION
  Report Type: 
  Country: None (occurrence: None)
  Receive Date: 20050427
  Receipt Date: 20050420
  Transmission Date: 20051028
  Serious: Yes (Death, Hospitalization)
  Sender: FDA-Public Use
  Company Number: 2005-BP-06047BR

PATIENT
  Age: 84 Year
  Sex: Male

DRUGS (1)
  1. SPIRIVA [Suspect]
     Indication: RESPIRATORY FAILURE
     Dosage: NR (18 MCG, NR) IH
     Route: 055
     Dates: end: 20050322

REACTIONS (3)
  - BRONCHOPNEUMONIA [None]
  - EMPHYSEMA [None]
  - OFF LABEL USE [None]
